FAERS Safety Report 18405590 (Version 2)
Quarter: 2020Q4

REPORT INFORMATION
  Report Type: Report from Study
  Country: US (occurrence: US)
  Receive Date: 20201020
  Receipt Date: 20201112
  Transmission Date: 20210114
  Serious: Yes (Hospitalization, Other)
  Sender: FDA-Public Use
  Company Number: US-PFIZER INC-2020399688

PATIENT
  Age: 4 Year
  Sex: Male
  Weight: 19.1 kg

DRUGS (4)
  1. TEMSIROLIMUS. [Suspect]
     Active Substance: TEMSIROLIMUS
     Indication: EMBRYONAL RHABDOMYOSARCOMA
     Dosage: UNK
     Dates: start: 20200918, end: 20200918
  2. CYCLOPHOSPHAMIDE. [Suspect]
     Active Substance: CYCLOPHOSPHAMIDE
     Indication: EMBRYONAL RHABDOMYOSARCOMA
     Dosage: 1200 MG/M2, CYCLIC(OVER 60 MINUTES ON DAY 1 OF CYCLES 1 AND 3)
     Route: 042
  3. DACTINOMYCIN [Suspect]
     Active Substance: DACTINOMYCIN
     Indication: EMBRYONAL RHABDOMYOSARCOMA
     Dosage: 0.05 MG/KG,  CYCLIC (OVER 1- 5 MINUTES ON DAY 1 OF CYCLES 1 AND 3)
     Route: 042
  4. VINCRISTINE SULFATE. [Suspect]
     Active Substance: VINCRISTINE SULFATE
     Indication: EMBRYONAL RHABDOMYOSARCOMA
     Dosage: 1.5 MG/M2, CYCLIC(OVER 1 MINUTE OR INFUSION VIA MINIBAG ON DAYS 1, 8, AND 15)
     Route: 042

REACTIONS (2)
  - Febrile neutropenia [Recovered/Resolved]
  - Anaemia [Recovered/Resolved]

NARRATIVE: CASE EVENT DATE: 20200918
